FAERS Safety Report 16744573 (Version 1)
Quarter: 2019Q3

REPORT INFORMATION
  Report Type: Spontaneous
  Country: US (occurrence: US)
  Receive Date: 20190827
  Receipt Date: 20190827
  Transmission Date: 20191005
  Serious: No
  Sender: FDA-Public Use
  Company Number: US-DSJP-DSU-2019-131362

PATIENT

DRUGS (5)
  1. OLMESARTAN HCT AN [Suspect]
     Active Substance: HYDROCHLOROTHIAZIDE\OLMESARTAN MEDOXOMIL
     Dosage: (20/12.5 MG TABLET), QD
     Route: 048
     Dates: start: 2019
  2. OLMESARTAN HCT AN [Suspect]
     Active Substance: HYDROCHLOROTHIAZIDE\OLMESARTAN MEDOXOMIL
     Indication: HYPERTENSION
     Dosage: (20/12.5 MG TABLET), QD
     Route: 048
     Dates: start: 2017, end: 2018
  3. BENICAR HCT [Suspect]
     Active Substance: HYDROCHLOROTHIAZIDE\OLMESARTAN MEDOXOMIL
     Indication: HYPERTENSION
     Dosage: (20/12.5 MG TABLET), QD
     Route: 048
     Dates: start: 2000, end: 2017
  4. OLMESARTAN HCT AN [Suspect]
     Active Substance: HYDROCHLOROTHIAZIDE\OLMESARTAN MEDOXOMIL
     Dosage: (20/12.5 MG TABLET), QD
     Route: 048
     Dates: start: 2018, end: 2018
  5. OLMESARTAN HCT AN [Suspect]
     Active Substance: HYDROCHLOROTHIAZIDE\OLMESARTAN MEDOXOMIL
     Dosage: (20/12.5 MG TABLET), QD
     Route: 048
     Dates: start: 2018, end: 2019

REACTIONS (4)
  - Muscular weakness [Not Recovered/Not Resolved]
  - Asthenia [Not Recovered/Not Resolved]
  - Dizziness [Not Recovered/Not Resolved]
  - Chest discomfort [Not Recovered/Not Resolved]

NARRATIVE: CASE EVENT DATE: 2018
